FAERS Safety Report 6746962-9 (Version None)
Quarter: 2010Q2

REPORT INFORMATION
  Report Type: 
  Country: None (occurrence: None)
  Receive Date: 20100528
  Receipt Date: 20091023
  Transmission Date: 20101027
  Serious: No
  Sender: FDA-Public Use
  Company Number: US-ASTRAZENECA-2009SE31838

PATIENT

DRUGS (5)
  1. PRILOSEC OTC [Suspect]
     Dosage: 1 TABLET, 1 /DAY
     Route: 048
     Dates: start: 20040101
  2. PRILOSEC OTC [Suspect]
     Dosage: 1 TABLET, 2 /DAY
     Route: 048
  3. REGLAN [Concomitant]
     Dosage: UNKNOWN
  4. PROZAC                             /00724401/ [Concomitant]
     Dosage: UNKNOWN
  5. PRIMALAN [Concomitant]
     Dosage: UNKNOWN

REACTIONS (3)
  - HEADACHE [None]
  - INCORRECT DOSE ADMINISTERED [None]
  - INCORRECT DRUG ADMINISTRATION DURATION [None]
